FAERS Safety Report 7707194-0 (Version None)
Quarter: 2011Q3

REPORT INFORMATION
  Report Type: 
  Country: None (occurrence: None)
  Receive Date: 20110824
  Receipt Date: 20110809
  Transmission Date: 20111222
  Serious: Yes (Hospitalization)
  Sender: FDA-Public Use
  Company Number: PHHY2011ES71812

PATIENT
  Age: 64 Year
  Sex: Female

DRUGS (6)
  1. HYDROCHLOROTHIAZIDE [Interacting]
     Indication: HYPERTENSION
     Dosage: 25 MG, QD
     Route: 048
     Dates: start: 20090901, end: 20100430
  2. ALLOPURINOL [Concomitant]
     Indication: HYPERURICAEMIA
     Dosage: 300 MG, QD
     Route: 048
  3. ACTONEL [Concomitant]
     Dosage: 35 MG, QD
     Route: 048
  4. VALSARTAN [Suspect]
     Indication: HYPERTENSION
     Dosage: 320 MG, QD
     Route: 048
     Dates: start: 20090901
  5. EXXIV [Interacting]
     Dosage: 300 MG, QD
     Route: 048
     Dates: start: 20100401, end: 20100430
  6. CALCIUM CARBONATE [Concomitant]
     Dosage: UNK UKN, UNK

REACTIONS (7)
  - DYSPNOEA [None]
  - OLIGURIA [None]
  - DRUG INTERACTION [None]
  - BLOOD CREATININE INCREASED [None]
  - ORTHOPNOEA [None]
  - CARDIAC FAILURE [None]
  - RENAL FAILURE ACUTE [None]
